FAERS Safety Report 5742454-4 (Version None)
Quarter: 2008Q2

REPORT INFORMATION
  Report Type: 
  Country: None (occurrence: None)
  Receive Date: 20080514
  Receipt Date: 20080514
  Transmission Date: 20081010
  Serious: Yes (Hospitalization)
  Sender: FDA-Public Use
  Company Number: None

PATIENT
  Age: 56 Year
  Sex: Male
  Weight: 42.7288 kg

DRUGS (1)
  1. BENZOIN COMPOUND [Suspect]
     Indication: SURGERY
     Dates: start: 20080417, end: 20080421

REACTIONS (2)
  - APPLICATION SITE HYPERSENSITIVITY [None]
  - ERYTHEMA MULTIFORME [None]
